FAERS Safety Report 16789810 (Version 1)
Quarter: 2019Q3

REPORT INFORMATION
  Report Type: Report from Study
  Country: ES (occurrence: ES)
  Receive Date: 20190910
  Receipt Date: 20190910
  Transmission Date: 20191005
  Serious: Yes (Hospitalization, Other)
  Sender: FDA-Public Use
  Company Number: ES-JNJFOC-20170627019

PATIENT
  Age: 69 Year
  Sex: Female
  Weight: 56.5 kg

DRUGS (14)
  1. ESKETAMINE [Suspect]
     Active Substance: ESKETAMINE
     Indication: DEPRESSION
     Dates: start: 20170427, end: 20170626
  2. MIRTAZAPINA [Suspect]
     Active Substance: MIRTAZAPINE
     Route: 048
     Dates: start: 20170602, end: 20170605
  3. IBUPROFENO [Concomitant]
     Active Substance: IBUPROFEN
     Indication: OSTEOPOROSIS
     Route: 048
     Dates: start: 20170223
  4. MIRTAZAPINA [Suspect]
     Active Substance: MIRTAZAPINE
     Route: 048
     Dates: start: 20170615, end: 20190619
  5. DIAZEPAM. [Concomitant]
     Active Substance: DIAZEPAM
     Indication: DEPRESSION
     Route: 048
     Dates: start: 20170228, end: 20170615
  6. CALCIFEDIOL [Concomitant]
     Active Substance: CALCIFEDIOL
     Indication: OSTEOPOROSIS
     Route: 048
     Dates: start: 20160219
  7. PROPRANOLOL [Concomitant]
     Active Substance: PROPRANOLOL HYDROCHLORIDE
     Indication: DEPRESSION
     Route: 048
     Dates: start: 20190616, end: 20190704
  8. MIRTAZAPINA [Suspect]
     Active Substance: MIRTAZAPINE
     Route: 048
     Dates: start: 20170606, end: 20170614
  9. SUMIAL [Concomitant]
     Active Substance: PROPRANOLOL HYDROCHLORIDE
     Indication: DEPRESSION
     Route: 048
     Dates: start: 20170616, end: 20170711
  10. MIRTAZAPINA [Suspect]
     Active Substance: MIRTAZAPINE
     Route: 048
     Dates: start: 20170626, end: 20170627
  11. MIRTAZAPINA [Suspect]
     Active Substance: MIRTAZAPINE
     Route: 048
     Dates: start: 20170620, end: 20170625
  12. MIRTAZAPINA [Suspect]
     Active Substance: MIRTAZAPINE
     Indication: DEPRESSION
     Route: 048
     Dates: start: 20170525, end: 20170601
  13. DIAZEPAM. [Concomitant]
     Active Substance: DIAZEPAM
     Route: 048
     Dates: start: 20170616, end: 20170706
  14. DIAZEPAM. [Concomitant]
     Active Substance: DIAZEPAM
     Route: 048
     Dates: start: 20170615, end: 20170615

REACTIONS (1)
  - Akathisia [Not Recovered/Not Resolved]

NARRATIVE: CASE EVENT DATE: 20170627
